FAERS Safety Report 9922714 (Version 2)
Quarter: 2014Q1

REPORT INFORMATION
  Report Type: Report from Study
  Country: US (occurrence: US)
  Receive Date: 20140225
  Receipt Date: 20140225
  Transmission Date: 20141002
  Serious: Yes (Other)
  Sender: FDA-Public Use
  Company Number: US-BRISTOL-MYERS SQUIBB COMPANY-19094259

PATIENT
  Age: 39 Year
  Sex: Female
  Weight: 150 kg

DRUGS (13)
  1. METRELEPTIN [Suspect]
     Indication: OBESITY
     Dosage: INTERRUPTED ON 28NOV2008
     Route: 058
     Dates: start: 20080530
  2. PRAMLINTIDE ACETATE [Suspect]
     Indication: OBESITY
     Dosage: INTERRUPTED ON 28NOV2008
     Route: 058
     Dates: start: 20080530
  3. PLACEBO [Suspect]
     Indication: OBESITY
     Dosage: INTERRUPTED ON 29MAY2008
     Dates: start: 20080523
  4. FOLIC ACID [Concomitant]
     Indication: NUTRITIONAL SUPPLEMENTATION
     Route: 048
     Dates: start: 20060921
  5. IRON [Concomitant]
     Indication: NUTRITIONAL SUPPLEMENTATION
     Route: 048
     Dates: start: 200601
  6. MULTIVITAMINS [Concomitant]
     Indication: NUTRITIONAL SUPPLEMENTATION
     Route: 048
     Dates: start: 2006
  7. PRENATAL VITAMINS [Concomitant]
     Indication: NUTRITIONAL SUPPLEMENTATION
     Route: 048
     Dates: start: 20081106
  8. PYRIDOXINE [Concomitant]
     Indication: NUTRITIONAL SUPPLEMENTATION
     Route: 048
     Dates: start: 2006
  9. VITAMIN B12 [Concomitant]
     Indication: NUTRITIONAL SUPPLEMENTATION
     Route: 048
     Dates: start: 2006
  10. VITAMIN B12 [Concomitant]
     Indication: NUTRITIONAL SUPPLEMENTATION
     Dates: start: 20120601
  11. VITAMIN D [Concomitant]
     Indication: PRODUCT USED FOR UNKNOWN INDICATION
     Route: 058
     Dates: start: 20121030
  12. POTASSIUM CHLORIDE [Concomitant]
     Indication: PRODUCT USED FOR UNKNOWN INDICATION
     Route: 048
  13. WELCHOL [Concomitant]
     Indication: DYSLIPIDAEMIA
     Route: 048
     Dates: start: 20120703

REACTIONS (24)
  - Neutralising antibodies [Not Recovered/Not Resolved]
  - Weight increased [Not Recovered/Not Resolved]
  - Endocrine disorder [Not Recovered/Not Resolved]
  - Type 2 diabetes mellitus [Not Recovered/Not Resolved]
  - Hypertension [Not Recovered/Not Resolved]
  - Sleep apnoea syndrome [Not Recovered/Not Resolved]
  - Hypoxia [Unknown]
  - Chest pain [Unknown]
  - Dyspnoea [Unknown]
  - Oedema peripheral [Not Recovered/Not Resolved]
  - Glucose tolerance impaired [Not Recovered/Not Resolved]
  - Dysuria [Unknown]
  - Fatigue [Not Recovered/Not Resolved]
  - Abdominal pain lower [Unknown]
  - Respiratory tract infection [Unknown]
  - Back pain [Not Recovered/Not Resolved]
  - Osteoarthritis [Not Recovered/Not Resolved]
  - Vaginal infection [Unknown]
  - Gait disturbance [Unknown]
  - Amenorrhoea [Unknown]
  - Major depression [Unknown]
  - Diarrhoea [Unknown]
  - Weight decreased [Unknown]
  - Blood glucose increased [Unknown]
